FAERS Safety Report 6567649-1 (Version None)
Quarter: 2010Q1

REPORT INFORMATION
  Report Type: 
  Country: None (occurrence: None)
  Receive Date: 20100202
  Receipt Date: 20100128
  Transmission Date: 20100710
  Serious: Yes (Other)
  Sender: FDA-Public Use
  Company Number: TW-BRISTOL-MYERS SQUIBB COMPANY-14952709

PATIENT
  Sex: Female

DRUGS (1)
  1. BARACLUDE [Suspect]
     Dosage: 0.5MG 2 TAB/QID FOR 1 WEEK, THEN CHANGED TO 0.5MG 1 TAB/QID FOR 6WEEKS

REACTIONS (2)
  - HEPATITIS B [None]
  - THROMBOCYTOPENIA [None]
